FAERS Safety Report 8160297-1 (Version None)
Quarter: 2012Q1

REPORT INFORMATION
  Report Type: 
  Country: None (occurrence: None)
  Receive Date: 20120223
  Receipt Date: 20120223
  Transmission Date: 20120608
  Serious: No
  Sender: FDA-Public Use
  Company Number: None

PATIENT
  Sex: Female
  Weight: 44.452 kg

DRUGS (10)
  1. TYLENOL W/ CODEINE NO. 3 [Concomitant]
  2. BELADONNA [Concomitant]
  3. XANAX [Concomitant]
  4. PERCOCET [Concomitant]
  5. BACLOFEN [Concomitant]
  6. PREDNISONE [Concomitant]
  7. TYSABRI [Suspect]
     Indication: MULTIPLE SCLEROSIS
     Dosage: 300MG
     Route: 041
  8. AMBIEN [Concomitant]
  9. NEXIUM [Concomitant]
  10. TOPAMAX [Concomitant]

REACTIONS (10)
  - FATIGUE [None]
  - TREMOR [None]
  - HYPOAESTHESIA [None]
  - HEADACHE [None]
  - CONFUSIONAL STATE [None]
  - PARAESTHESIA [None]
  - INFUSION [None]
  - MUSCULAR WEAKNESS [None]
  - MUSCLE SPASMS [None]
  - COGNITIVE DISORDER [None]
